FAERS Safety Report 11823927 (Version 4)
Quarter: 2017Q3

REPORT INFORMATION
  Report Type: Spontaneous
  Country: IN (occurrence: IN)
  Receive Date: 20151210
  Receipt Date: 20170815
  Transmission Date: 20171127
  Serious: Yes (Hospitalization)
  Sender: FDA-Public Use
  Company Number: IN-SA-2015SA204788

PATIENT
  Age: 58 Year
  Sex: Male

DRUGS (2)
  1. OXALIPLATIN. [Suspect]
     Active Substance: OXALIPLATIN
     Indication: METASTASES TO BONE
     Dosage: ADMINISTERED IN THE MORNING
     Route: 065
  2. OXALIPLATIN. [Suspect]
     Active Substance: OXALIPLATIN
     Indication: NEOPLASM
     Dosage: ADMINISTERED IN THE MORNING
     Route: 065

REACTIONS (10)
  - Pulmonary toxicity [Recovering/Resolving]
  - Pleural effusion [Recovering/Resolving]
  - Atelectasis [Recovering/Resolving]
  - Respiratory failure [Recovering/Resolving]
  - Dyspnoea [Recovering/Resolving]
  - Altered state of consciousness [Unknown]
  - Oxygen saturation decreased [Recovering/Resolving]
  - Pulmonary alveolar haemorrhage [Unknown]
  - Interstitial lung disease [Recovering/Resolving]
  - Computerised tomogram thorax abnormal [Recovering/Resolving]
